FAERS Safety Report 19742421 (Version 1)
Quarter: 2021Q3

REPORT INFORMATION
  Report Type: Spontaneous
  Country: US (occurrence: US)
  Receive Date: 20210823
  Receipt Date: 20210823
  Transmission Date: 20211014
  Serious: No
  Sender: FDA-Public Use
  Company Number: None

PATIENT

DRUGS (1)
  1. VANCOMYCIN IV [Suspect]
     Active Substance: VANCOMYCIN HYDROCHLORIDE
     Dosage: DOSAGE FORM: SOLUTION
     Route: 042

REACTIONS (4)
  - Product use issue [None]
  - Maternal exposure during pregnancy [None]
  - Drug monitoring procedure not performed [None]
  - Contraindicated product administered [None]
